FAERS Safety Report 5700013-3 (Version None)
Quarter: 2008Q2

REPORT INFORMATION
  Report Type: 
  Country: None (occurrence: None)
  Receive Date: 20080410
  Receipt Date: 20080407
  Transmission Date: 20081010
  Serious: Yes (Life-Threatening, Hospitalization)
  Sender: FDA-Public Use
  Company Number: US-ASTRAZENECA-2008UW04478

PATIENT
  Age: 17947 Day
  Sex: Female

DRUGS (8)
  1. SEROQUEL XR [Suspect]
     Indication: BIPOLAR I DISORDER
     Dosage: 6900-12000 MG
     Route: 048
     Dates: start: 20080303, end: 20080303
  2. SEROQUEL XR [Suspect]
     Route: 048
     Dates: start: 20071101, end: 20080303
  3. ALCOHOL [Suspect]
  4. THC [Suspect]
  5. LAMICTAL [Concomitant]
     Indication: CONVULSION
     Route: 048
  6. AMBIEN CR [Concomitant]
     Indication: INSOMNIA
     Route: 048
     Dates: start: 20070628, end: 20080303
  7. LISINOPRIL [Concomitant]
     Indication: HYPERTENSION
     Route: 048
  8. ALBUTEROL [Concomitant]
     Indication: ASTHMA
     Dosage: 1 OR 2 PUFFS

REACTIONS (1)
  - INTENTIONAL OVERDOSE [None]
